FAERS Safety Report 24900872 (Version 2)
Quarter: 2025Q1

REPORT INFORMATION
  Report Type: Spontaneous
  Country: CN (occurrence: CN)
  Receive Date: 20250129
  Receipt Date: 20250213
  Transmission Date: 20250409
  Serious: Yes (Other)
  Sender: BRISTOL-MYERS SQUIBB COMPANY
  Company Number: CN-MLMSERVICE-20250115-PI347541-00255-3

PATIENT
  Age: 49 Year
  Sex: Female
  Weight: 45 kg

DRUGS (12)
  1. PACLITAXEL [Suspect]
     Active Substance: PACLITAXEL
     Indication: Uterine cancer
     Dosage: 240 MG/M2; 6 CYCLES
     Dates: start: 20221028, end: 2023
  2. PACLITAXEL [Suspect]
     Active Substance: PACLITAXEL
     Indication: Metastases to lymph nodes
  3. PACLITAXEL [Suspect]
     Active Substance: PACLITAXEL
     Indication: Metastases to pelvis
  4. PACLITAXEL [Suspect]
     Active Substance: PACLITAXEL
     Indication: Disease recurrence
  5. PACLITAXEL [Suspect]
     Active Substance: PACLITAXEL
     Indication: Metastatic uterine cancer
  6. PACLITAXEL [Suspect]
     Active Substance: PACLITAXEL
     Indication: Adenocarcinoma metastatic
  7. CADONILIMAB [Suspect]
     Active Substance: CADONILIMAB
     Indication: Uterine cancer
     Dosage: 6 MG/KG; 6 CYCLES
     Dates: end: 20240708
  8. CADONILIMAB [Suspect]
     Active Substance: CADONILIMAB
     Indication: Metastases to lymph nodes
     Dosage: 6 MG/KG; 6 CYCLES
     Dates: start: 20221028, end: 2023
  9. CADONILIMAB [Suspect]
     Active Substance: CADONILIMAB
     Indication: Metastases to pelvis
  10. CADONILIMAB [Suspect]
     Active Substance: CADONILIMAB
     Indication: Disease recurrence
  11. CADONILIMAB [Suspect]
     Active Substance: CADONILIMAB
     Indication: Metastatic uterine cancer
  12. CADONILIMAB [Suspect]
     Active Substance: CADONILIMAB
     Indication: Adenocarcinoma metastatic

REACTIONS (5)
  - Neutropenia [Recovering/Resolving]
  - Rash pruritic [Recovered/Resolved]
  - Off label use [Unknown]
  - Hypothyroidism [Recovered/Resolved]
  - Hyperglycaemia [Recovering/Resolving]

NARRATIVE: CASE EVENT DATE: 20220101
